FAERS Safety Report 5358612-7 (Version None)
Quarter: 2007Q2

REPORT INFORMATION
  Report Type: 
  Country: None (occurrence: None)
  Receive Date: 20070615
  Receipt Date: 20070604
  Transmission Date: 20071010
  Serious: Yes (Death, Hospitalization)
  Sender: FDA-Public Use
  Company Number: GB-NOVOPROD-250650

PATIENT
  Age: 70 Year
  Sex: Male

DRUGS (8)
  1. NOVOSEVEN [Suspect]
     Indication: POST PROCEDURAL HAEMORRHAGE
     Dosage: 7.2 MG, QD
     Dates: start: 20041124
  2. DIGOXIN [Concomitant]
     Dosage: 250 UG, QD
  3. FRUSEMIDE                          /00032601/ [Concomitant]
     Dosage: 40 MG, QD
  4. WARFARIN [Concomitant]
     Dosage: 4 MG, QD
     Dates: end: 20041117
  5. METOCLOPRAMIDE [Concomitant]
     Dosage: 10 MG, BID
  6. CITALOPRAM HYDROBROMIDE [Concomitant]
     Dosage: 10 MG, QD
  7. ALLERGAN PROTEIN [Concomitant]
     Dosage: 2 UNK, BID
  8. XALATAN [Concomitant]
     Dosage: 1 UNK, QD

REACTIONS (1)
  - THROMBOEMBOLIC STROKE [None]
